FAERS Safety Report 5925722-2 (Version None)
Quarter: 2008Q3

REPORT INFORMATION
  Report Type: 
  Country: None (occurrence: None)
  Receive Date: 20080919
  Receipt Date: 20080821
  Transmission Date: 20090109
  Serious: Yes (Other)
  Sender: FDA-Public Use
  Company Number: US-WYE-H05671408

PATIENT
  Age: 48 Year
  Sex: Female

DRUGS (3)
  1. PRISTIQ [Suspect]
     Dosage: 50 MG 1X PER 1 DAY, ORAL
     Route: 048
  2. KLONOPIN [Concomitant]
  3. RISPERDAL [Concomitant]

REACTIONS (1)
  - ENURESIS [None]
